FAERS Safety Report 14348221 (Version 1)
Quarter: 2018Q1

REPORT INFORMATION
  Report Type: Report from Study
  Country: CA (occurrence: CA)
  Receive Date: 20180103
  Receipt Date: 20180103
  Transmission Date: 20180509
  Serious: Yes (Hospitalization)
  Sender: FDA-Public Use
  Company Number: CA-GLAXOSMITHKLINE-CA2017GSK202381

PATIENT
  Age: 70 Year
  Sex: Female

DRUGS (1)
  1. SALBUTAMOL SULPHATE [Suspect]
     Active Substance: ALBUTEROL SULFATE
     Indication: PRODUCT USED FOR UNKNOWN INDICATION
     Dosage: UNK
     Dates: start: 2010

REACTIONS (10)
  - Fatigue [Unknown]
  - Chest discomfort [Unknown]
  - Dyspnoea [Unknown]
  - Cough [Unknown]
  - Discomfort [Unknown]
  - Wheezing [Unknown]
  - Asthma [Unknown]
  - Sleep disorder [Unknown]
  - Frustration tolerance decreased [Unknown]
  - Disturbance in social behaviour [Unknown]

NARRATIVE: CASE EVENT DATE: 201712
